FAERS Safety Report 5059335-4 (Version None)
Quarter: 2006Q3

REPORT INFORMATION
  Report Type: 
  Country: None (occurrence: None)
  Receive Date: 20060724
  Receipt Date: 20060713
  Transmission Date: 20061208
  Serious: Yes (Death, Hospitalization)
  Sender: FDA-Public Use
  Company Number: PHEH2006US09031

PATIENT
  Age: 63 Year
  Sex: Female
  Weight: 97.052 kg

DRUGS (1)
  1. LAMISIL [Suspect]
     Dosage: 250 MG, QD
     Route: 048
     Dates: start: 20060227

REACTIONS (34)
  - ABNORMAL BEHAVIOUR [None]
  - ALANINE AMINOTRANSFERASE INCREASED [None]
  - ASPARTATE AMINOTRANSFERASE INCREASED [None]
  - ASTHENIA [None]
  - BILE DUCT OBSTRUCTION [None]
  - BILIRUBIN CONJUGATED INCREASED [None]
  - BIOPSY LIVER ABNORMAL [None]
  - BLOOD ALKALINE PHOSPHATASE INCREASED [None]
  - BLOOD BILIRUBIN INCREASED [None]
  - CEREBROVASCULAR ACCIDENT [None]
  - CHILLS [None]
  - CHROMATURIA [None]
  - DECREASED APPETITE [None]
  - DISTURBANCE IN ATTENTION [None]
  - ENDOTHELIAL DYSFUNCTION [None]
  - FATIGUE [None]
  - FEELING ABNORMAL [None]
  - HAEMATOCHEZIA [None]
  - HEPATIC FAILURE [None]
  - HEPATIC FIBROSIS [None]
  - HEPATITIS [None]
  - HEPATITIS CHOLESTATIC [None]
  - INFLAMMATION [None]
  - JAUNDICE [None]
  - LYMPHADENOPATHY [None]
  - NAUSEA [None]
  - OEDEMA PERIPHERAL [None]
  - ORAL INTAKE REDUCED [None]
  - PYREXIA [None]
  - RENAL FAILURE [None]
  - URINARY TRACT INFECTION [None]
  - VENOOCCLUSIVE LIVER DISEASE [None]
  - WEIGHT DECREASED [None]
  - WHITE BLOOD CELL COUNT INCREASED [None]
